FAERS Safety Report 5239053-X (Version None)
Quarter: 2007Q1

REPORT INFORMATION
  Report Type: 
  Country: None (occurrence: None)
  Receive Date: 20061208
  Receipt Date: 20050720
  Transmission Date: 20070707
  Serious: Yes (Other)
  Sender: FDA-Public Use
  Company Number: 2005UW09766

PATIENT
  Age: 73 Year
  Sex: Female
  Weight: 62.142 kg

DRUGS (13)
  1. CRESTOR [Suspect]
     Indication: BLOOD CHOLESTEROL INCREASED
     Dosage: 10 MG DAILY PO
     Route: 048
     Dates: start: 20050519
  2. INSULIN [Concomitant]
  3. VITAMIN D [Concomitant]
  4. ACTONEL [Concomitant]
  5. COUMADIN [Concomitant]
  6. LEVOXYL [Concomitant]
  7. DILANTIN [Concomitant]
  8. SPIRONOLACTONE [Concomitant]
  9. FUROSEMIDE [Concomitant]
  10. PREVACID [Concomitant]
  11. CARTIA XT [Concomitant]
  12. METOLAZONE [Concomitant]
  13. COZAAR [Concomitant]

REACTIONS (2)
  - DIARRHOEA [None]
  - FREQUENT BOWEL MOVEMENTS [None]
